FAERS Safety Report 5936650-0 (Version None)
Quarter: 2008Q4

REPORT INFORMATION
  Report Type: 
  Country: None (occurrence: None)
  Receive Date: 20081030
  Receipt Date: 20081016
  Transmission Date: 20090506
  Serious: Yes (Death, Other)
  Sender: FDA-Public Use
  Company Number: GB-GENENTECH-266168

PATIENT
  Age: 67 Year
  Sex: Female

DRUGS (1)
  1. MABTHERA [Suspect]
     Indication: DRUG USE FOR UNKNOWN INDICATION
     Dosage: 1000 MG, UNK
     Route: 042
     Dates: start: 20080609

REACTIONS (2)
  - LUNG INFILTRATION [None]
  - NEUTROPENIA [None]
